FAERS Safety Report 14327714 (Version 1)
Quarter: 2017Q4

REPORT INFORMATION
  Report Type: Report from Study
  Country: US (occurrence: US)
  Receive Date: 20171227
  Receipt Date: 20171227
  Transmission Date: 20180321
  Serious: Yes (Other)
  Sender: FDA-Public Use
  Company Number: US-BAYER-2017-244099

PATIENT
  Age: 67 Year
  Sex: Male

DRUGS (2)
  1. NEXAVAR [Suspect]
     Active Substance: SORAFENIB
     Indication: HEPATIC CANCER
     Dosage: 200 MG, BID
     Route: 048
     Dates: start: 2017, end: 20171116
  2. NEXAVAR [Suspect]
     Active Substance: SORAFENIB
     Indication: HEPATIC CANCER
     Dosage: 400 MG, BID
     Route: 048
     Dates: start: 20161101

REACTIONS (11)
  - Skin exfoliation [Recovered/Resolved]
  - Heart valve replacement [None]
  - Dizziness [Recovered/Resolved]
  - Weight increased [Recovered/Resolved]
  - Epistaxis [Recovered/Resolved]
  - Hepatic cancer [None]
  - Pain in extremity [Recovered/Resolved]
  - Weight increased [Recovered/Resolved]
  - Erythema [Recovered/Resolved]
  - Blister [Recovered/Resolved]
  - Grip strength decreased [Recovered/Resolved]

NARRATIVE: CASE EVENT DATE: 201611
